FAERS Safety Report 15585060 (Version 1)
Quarter: 2018Q4

REPORT INFORMATION
  Report Type: Spontaneous
  Country: PT (occurrence: PT)
  Receive Date: 20181105
  Receipt Date: 20181105
  Transmission Date: 20190205
  Serious: Yes (Other)
  Sender: FDA-Public Use
  Company Number: PT-BAUSCH-BL-2018-029904

PATIENT
  Age: 66 Year
  Sex: Female

DRUGS (9)
  1. COSOPT [Suspect]
     Active Substance: DORZOLAMIDE HYDROCHLORIDE\TIMOLOL MALEATE
     Indication: PRODUCT USED FOR UNKNOWN INDICATION
     Dosage: PATIENT STOPPED THE MEDICINAL PRODUCT ON 25/SEP/2018 (^GIVE IT OR TAKE IT A FEW DAYS^)
     Route: 047
     Dates: start: 201809, end: 20180925
  2. EDOLFENE [Suspect]
     Active Substance: FLURBIPROFEN SODIUM
     Indication: PRODUCT USED FOR UNKNOWN INDICATION
     Dosage: START DATE: AFTER CATARACT SURGERY TO THE RIGHT EYE (SPECIFIC DATE UNKNOWN).
     Route: 047
     Dates: start: 201809, end: 201809
  3. RONIC [Suspect]
     Active Substance: DEXAMETHASONE SODIUM PHOSPHATE
     Indication: PRODUCT USED FOR UNKNOWN INDICATION
     Dosage: START DATE: AFTER CATARACT SURGERY TO THE RIGHT EYE (SPECIFIC DATE UNKNOWN)
     Route: 047
     Dates: start: 201809, end: 201809
  4. RONIC [Suspect]
     Active Substance: DEXAMETHASONE SODIUM PHOSPHATE
     Dosage: DAILY DOSE WAS DECREASED FROM 6X/DAY TO 4X/DAY ON 17/SEP/2018. PATIENT STOPPED THE MEDICINAL PRODUCT
     Route: 047
     Dates: start: 20180917, end: 201809
  5. XALATAN [Concomitant]
     Active Substance: LATANOPROST
     Indication: PRODUCT USED FOR UNKNOWN INDICATION
     Dosage: XALATAN 0.005 PERCENT W/V EYE DROPS, SOLUTION ON HER LEFT EYE
  6. CHIBROXOL [Suspect]
     Active Substance: NORFLOXACIN
     Indication: PRODUCT USED FOR UNKNOWN INDICATION
     Dosage: START DATE: AFTER CATARACT SURGERY TO THE RIGHT EYE (SPECIFIC DATE UNKNOWN). PATIENT STOPPED THE MED
     Route: 047
     Dates: start: 201809, end: 201809
  7. YELLOX 0.9 MG/ML EYE DROPS, SOLUTION [Suspect]
     Active Substance: BROMFENAC SODIUM
     Indication: PRODUCT USED FOR UNKNOWN INDICATION
     Dosage: MEDICINAL PRODUCT REPLACED THE PREVIOUSLY USED MEDICINAL PRODUCT EDOLFENE EYE DROPS, SOLUTION AT UNK
     Route: 047
     Dates: start: 201809, end: 201809
  8. ELIPA [Suspect]
     Active Substance: KETOROLAC TROMETHAMINE
     Indication: PRODUCT USED FOR UNKNOWN INDICATION
     Dosage: UNKNOWN START OR END DATES.
     Route: 065
  9. RONIC [Suspect]
     Active Substance: DEXAMETHASONE SODIUM PHOSPHATE
     Dosage: DAILY DOSE INCREASED FOR 6X/DAY AT UNKNOWN DATE.
     Route: 047
     Dates: start: 201809, end: 201809

REACTIONS (10)
  - Throat irritation [Not Recovered/Not Resolved]
  - Feeling cold [Not Recovered/Not Resolved]
  - Swelling [Recovered/Resolved]
  - Increased upper airway secretion [Not Recovered/Not Resolved]
  - Pyrexia [Recovered/Resolved]
  - Hypokinesia [Not Recovered/Not Resolved]
  - Asthenia [Not Recovered/Not Resolved]
  - Dysgeusia [Not Recovered/Not Resolved]
  - Eye irritation [Recovered/Resolved]
  - Swelling face [Not Recovered/Not Resolved]

NARRATIVE: CASE EVENT DATE: 20180924
